FAERS Safety Report 5572900-0 (Version None)
Quarter: 2007Q4

REPORT INFORMATION
  Report Type: 
  Country: None (occurrence: None)
  Receive Date: 20071219
  Receipt Date: 20071219
  Transmission Date: 20080405
  Serious: Yes (Hospitalization)
  Sender: FDA-Public Use
  Company Number: None

PATIENT
  Age: 85 Year
  Sex: Female
  Weight: 57 kg

DRUGS (16)
  1. SERTRALINE [Suspect]
     Indication: DEPRESSION
     Dosage: PO
     Route: 048
  2. FUROSEMIDE [Concomitant]
  3. DIAZEPAM [Concomitant]
  4. PANTOPRAZOLE SODIUM [Concomitant]
  5. AMLODIPINE [Concomitant]
  6. POTASSIUM CHLORIDE [Concomitant]
  7. ASPIRIN [Concomitant]
  8. ATORVASTATIN [Concomitant]
  9. DOCUSATE [Concomitant]
  10. MULTI-VITAMIN [Concomitant]
  11. CONJUGATED ESTROGEN [Concomitant]
  12. ZOLPIDEM [Concomitant]
  13. ACETAMINOPHEN [Concomitant]
  14. MILK OF MAGNESIA [Concomitant]
  15. METOPROLOL SUCCINATE [Concomitant]
  16. LEVOFLOXACIN [Concomitant]

REACTIONS (5)
  - ABDOMINAL DISCOMFORT [None]
  - ASTHENIA [None]
  - HYPONATRAEMIA [None]
  - NAUSEA [None]
  - VOMITING [None]
